FAERS Safety Report 7472416-0 (Version None)
Quarter: 2011Q2

REPORT INFORMATION
  Report Type: 
  Country: None (occurrence: None)
  Receive Date: 20110511
  Receipt Date: 20110425
  Transmission Date: 20111010
  Serious: No
  Sender: FDA-Public Use
  Company Number: US-B.I. PHARMACEUTICALS,INC./RIDGEFIELD-2011-BP-11707BP

PATIENT
  Age: 91 Year
  Sex: Female

DRUGS (6)
  1. LOSARTAN POTASSIUM [Concomitant]
     Indication: HYPERTENSION
  2. PRADAXA [Suspect]
     Indication: ATRIAL FIBRILLATION
     Dosage: 300 MG
     Route: 048
     Dates: start: 20110320
  3. XALATAN [Concomitant]
     Indication: GLAUCOMA
  4. METOPROLOL SUCCINATE [Concomitant]
     Indication: HYPERTENSION
  5. REFRESH [Concomitant]
     Indication: GLAUCOMA
  6. SIMVASTATIN [Concomitant]
     Indication: BLOOD CHOLESTEROL INCREASED

REACTIONS (1)
  - REGURGITATION [None]
